FAERS Safety Report 8089977-3 (Version None)
Quarter: 2012Q1

REPORT INFORMATION
  Report Type: 
  Country: None (occurrence: None)
  Receive Date: 20120129
  Receipt Date: 20111027
  Transmission Date: 20120608
  Serious: No
  Sender: FDA-Public Use
  Company Number: US-ABBOTT-11P-163-0857280-00

PATIENT
  Age: 49 Year
  Sex: Male

DRUGS (8)
  1. HYDROCHLOROTHIAZIDE [Concomitant]
     Indication: ATRIAL FIBRILLATION
     Dosage: DAILY
  2. SIMVASTATIN [Concomitant]
     Indication: ATRIAL FIBRILLATION
  3. HUMIRA [Suspect]
     Indication: PSORIATIC ARTHROPATHY
     Dates: start: 20110401
  4. VERAPAMIL [Concomitant]
     Indication: ARTERIOSPASM CORONARY
     Dosage: DAILY
  5. PLAVIX [Concomitant]
     Indication: ATRIAL FIBRILLATION
     Dosage: DAILY
  6. COUMADIN [Concomitant]
     Indication: ATRIAL FIBRILLATION
  7. LISINOPRIL [Concomitant]
     Indication: ATRIAL FIBRILLATION
     Dosage: DAILY
  8. NITRO-BID [Concomitant]
     Indication: ANGINA PECTORIS
     Dosage: DAILY

REACTIONS (6)
  - PHARYNGITIS STREPTOCOCCAL [None]
  - INCORRECT DRUG ADMINISTRATION DURATION [None]
  - OROPHARYNGEAL PAIN [None]
  - DRY SKIN [None]
  - PARANASAL SINUS HYPERSECRETION [None]
  - SKIN DISORDER [None]
